FAERS Safety Report 6468898-3 (Version None)
Quarter: 2009Q4

REPORT INFORMATION
  Report Type: 
  Country: None (occurrence: None)
  Receive Date: 20091203
  Receipt Date: 20081029
  Transmission Date: 20100525
  Serious: Yes (Hospitalization)
  Sender: FDA-Public Use
  Company Number: JP-ELI_LILLY_AND_COMPANY-JP200603004473

PATIENT
  Sex: Female
  Weight: 55 kg

DRUGS (4)
  1. RALOXIFENE HYDROCHLORIDE [Suspect]
     Indication: OSTEOPOROSIS POSTMENOPAUSAL
     Dosage: 60 MG, DAILY (1/D)
     Route: 048
     Dates: start: 20050214, end: 20080119
  2. LIPITOR [Concomitant]
     Indication: HYPERLIPIDAEMIA
     Dosage: 10 MG, DAILY (1/D)
     Route: 048
     Dates: start: 20040407
  3. AMLODIPINE [Concomitant]
     Indication: HYPERTENSION
     Dosage: 5 MG, UNK
     Route: 048
  4. MARZULENE S [Concomitant]
     Indication: GASTRITIS
     Dosage: 1.5 G, DAILY (1/D)
     Route: 048
     Dates: start: 20050531

REACTIONS (2)
  - CEREBRAL INFARCTION [None]
  - MALIGNANT PERITONEAL NEOPLASM [None]
